FAERS Safety Report 7732692-3 (Version None)
Quarter: 2011Q3

REPORT INFORMATION
  Report Type: 
  Country: None (occurrence: None)
  Receive Date: 20110907
  Receipt Date: 20110829
  Transmission Date: 20111222
  Serious: Yes (Hospitalization)
  Sender: FDA-Public Use
  Company Number: US-BIOGENIDEC-2010BI045008

PATIENT
  Age: 48 Year
  Sex: Female

DRUGS (3)
  1. UNKNOWN ANTIDEPRESSANT MEDICATION [Concomitant]
  2. AVONEX [Suspect]
     Route: 030
  3. AVONEX [Suspect]
     Indication: MULTIPLE SCLEROSIS
     Route: 030
     Dates: start: 20101101

REACTIONS (2)
  - BLOOD GLUCOSE INCREASED [None]
  - STRESS [None]
